FAERS Safety Report 6384358-2 (Version None)
Quarter: 2009Q4

REPORT INFORMATION
  Report Type: 
  Country: None (occurrence: None)
  Receive Date: 20091001
  Receipt Date: 20090928
  Transmission Date: 20100525
  Serious: Yes (Other)
  Sender: FDA-Public Use
  Company Number: JP-B.I. PHARMACEUTICALS,INC./RIDGEFIELD-2009-BP-11404NB

PATIENT

DRUGS (3)
  1. MICARDIS [Suspect]
     Dosage: 40 MG
     Route: 048
  2. MYSLEE [Suspect]
     Route: 048
  3. ACTOS [Concomitant]
     Route: 048

REACTIONS (1)
  - LOSS OF CONSCIOUSNESS [None]
